FAERS Safety Report 9544089 (Version 4)
Quarter: 2013Q4

REPORT INFORMATION
  Report Type: Spontaneous
  Country: IT (occurrence: IT)
  Receive Date: 20130923
  Receipt Date: 20131125
  Transmission Date: 20140711
  Serious: Yes (Hospitalization)
  Sender: FDA-Public Use
  Company Number: IT-ASTRAZENECA-2013SE70707

PATIENT
  Age: 18574 Day
  Sex: Male

DRUGS (10)
  1. SEROQUEL [Suspect]
     Indication: DRUG ABUSE
     Route: 048
     Dates: start: 20130909, end: 20130909
  2. SEROQUEL [Suspect]
     Indication: DRUG ABUSE
     Route: 048
  3. REMERON [Suspect]
     Indication: DEPRESSION
     Route: 048
     Dates: start: 20130909, end: 20130909
  4. REMERON [Suspect]
     Indication: DEPRESSION
     Route: 048
  5. PAROXETINE [Suspect]
     Indication: DEPRESSION
     Route: 048
     Dates: start: 20130909, end: 20130909
  6. PAROXETINE [Suspect]
     Indication: DEPRESSION
     Route: 048
  7. TAVOR [Suspect]
     Indication: INSOMNIA
     Route: 048
     Dates: start: 20130909, end: 20130909
  8. TAVOR [Suspect]
     Indication: DRUG ABUSE
     Route: 048
     Dates: start: 20130909, end: 20130909
  9. TAVOR [Suspect]
     Indication: INSOMNIA
     Route: 048
  10. TAVOR [Suspect]
     Indication: DRUG ABUSE
     Route: 048

REACTIONS (4)
  - Drug abuse [Recovered/Resolved]
  - Condition aggravated [Recovered/Resolved]
  - Asthenia [Recovered/Resolved]
  - Mood swings [Unknown]
